FAERS Safety Report 20131967 (Version 2)
Quarter: 2021Q4

REPORT INFORMATION
  Report Type: Report from Study
  Country: MX (occurrence: MX)
  Receive Date: 20211130
  Receipt Date: 20211206
  Transmission Date: 20220303
  Serious: Yes (Other)
  Sender: FDA-Public Use
  Company Number: MX-NOVARTISPH-NVSC2021MX271683

PATIENT
  Sex: Female

DRUGS (2)
  1. INDACATEROL MALEATE [Suspect]
     Active Substance: INDACATEROL MALEATE
     Indication: Product used for unknown indication
     Dosage: 1 DOSAGE FORM, QD
     Route: 055
  2. GLYCOPYRROLATE [Suspect]
     Active Substance: GLYCOPYRROLATE
     Indication: Product used for unknown indication
     Dosage: 1 DOSAGE FORM, QD
     Route: 055

REACTIONS (14)
  - Intervertebral disc protrusion [Unknown]
  - Pulmonary hypertension [Unknown]
  - Respiratory disorder [Unknown]
  - Cardiac disorder [Unknown]
  - Pain in extremity [Unknown]
  - Neck pain [Unknown]
  - Arthralgia [Unknown]
  - Hypoaesthesia [Unknown]
  - Weight increased [Unknown]
  - Spinal disorder [Unknown]
  - Dyspnoea [Unknown]
  - Hypoacusis [Unknown]
  - Visual impairment [Unknown]
  - Aphasia [Unknown]
